FAERS Safety Report 8155877-3 (Version None)
Quarter: 2012Q1

REPORT INFORMATION
  Report Type: 
  Country: None (occurrence: None)
  Receive Date: 20120222
  Receipt Date: 20120213
  Transmission Date: 20120608
  Serious: Yes (Other)
  Sender: FDA-Public Use
  Company Number: US-JNJFOC-20120206742

PATIENT
  Sex: Female

DRUGS (1)
  1. DURAGESIC-100 [Suspect]
     Indication: POST-TRAUMATIC PAIN
     Route: 062
     Dates: start: 20110601

REACTIONS (7)
  - ACNE [None]
  - DRUG ABUSE [None]
  - PRODUCT QUALITY ISSUE [None]
  - DRUG PRESCRIBING ERROR [None]
  - DRUG DIVERSION [None]
  - INCORRECT STORAGE OF DRUG [None]
  - DRUG DOSE OMISSION [None]
